FAERS Safety Report 4747493-8 (Version None)
Quarter: 2005Q3

REPORT INFORMATION
  Report Type: 
  Country: None (occurrence: None)
  Receive Date: 20050815
  Receipt Date: 20050602
  Transmission Date: 20060218
  Serious: No
  Sender: FDA-Public Use
  Company Number: USA050699584

PATIENT
  Age: 51 Year
  Sex: Male

DRUGS (5)
  1. CIALIS [Suspect]
     Indication: ERECTILE DYSFUNCTION
     Dosage: 20 MG/ 1 AS NEEDED
     Dates: start: 20040601
  2. LIPITOR [Concomitant]
  3. WELLBUTRIN [Concomitant]
  4. FOLDEE [Concomitant]
  5. LORAZEPAM [Concomitant]

REACTIONS (1)
  - THERAPEUTIC RESPONSE DECREASED [None]
